FAERS Safety Report 6271253-2 (Version None)
Quarter: 2009Q3

REPORT INFORMATION
  Report Type: 
  Country: None (occurrence: None)
  Receive Date: 20090716
  Receipt Date: 20090716
  Transmission Date: 20100115
  Serious: Yes (Life-Threatening)
  Sender: FDA-Public Use
  Company Number: None

PATIENT
  Sex: Female
  Weight: 79.8331 kg

DRUGS (1)
  1. CELEBREX [Suspect]
     Indication: ARTHRALGIA
     Dosage: 200MG 1 PO
     Route: 048
     Dates: start: 20081006, end: 20090106

REACTIONS (4)
  - ARTHRALGIA [None]
  - FATIGUE [None]
  - MALAISE [None]
  - RENAL FAILURE ACUTE [None]
